FAERS Safety Report 7487120-2 (Version None)
Quarter: 2011Q2

REPORT INFORMATION
  Report Type: 
  Country: None (occurrence: None)
  Receive Date: 20110510
  Receipt Date: 20110425
  Transmission Date: 20111010
  Serious: Yes (Hospitalization, Other)
  Sender: FDA-Public Use
  Company Number: 031934

PATIENT
  Sex: Male
  Weight: 83 kg

DRUGS (4)
  1. CIMZIA [Suspect]
     Indication: CROHN'S DISEASE
     Dosage: (200 MG 1X/2 WEEKS SUBCUTANEOUS)
     Route: 058
     Dates: start: 20090101
  2. PREDNISONE [Concomitant]
  3. METHOTREXATE [Concomitant]
  4. FERROUS SULFATE TAB [Concomitant]

REACTIONS (3)
  - HAEMOGLOBIN DECREASED [None]
  - OFF LABEL USE [None]
  - ULCER [None]
